FAERS Safety Report 4808493-2 (Version None)
Quarter: 2005Q4

REPORT INFORMATION
  Report Type: 
  Country: None (occurrence: None)
  Receive Date: 20051021
  Receipt Date: 20020422
  Transmission Date: 20060501
  Serious: No
  Sender: FDA-Public Use
  Company Number: US_020584135

PATIENT
  Sex: Male

DRUGS (6)
  1. ZYPREXA [Suspect]
     Indication: DELUSION
     Dosage: 5 MG/1 DAY
     Dates: start: 20010730, end: 20020220
  2. ZYPREXA [Suspect]
     Indication: PSYCHIATRIC SYMPTOM
     Dosage: 5 MG/1 DAY
     Dates: start: 20010730, end: 20020220
  3. QUETIAPINE FUMARATE [Concomitant]
  4. MADOPAR [Concomitant]
  5. METHYCOBAL (MECOBALAMIN) [Concomitant]
  6. MARZULENE (SODIUM GUALENATE) [Concomitant]

REACTIONS (1)
  - PLATELET COUNT INCREASED [None]
